APPROVED DRUG PRODUCT: CATAPRES
Active Ingredient: CLONIDINE HYDROCHLORIDE
Strength: 0.2MG **Federal Register determination that product was not discontinued or withdrawn for safety or effectiveness reasons**
Dosage Form/Route: TABLET;ORAL
Application: N017407 | Product #002
Applicant: BOEHRINGER INGELHEIM
Approved: Approved Prior to Jan 1, 1982 | RLD: Yes | RS: No | Type: DISCN